FAERS Safety Report 20596343 (Version 2)
Quarter: 2022Q2

REPORT INFORMATION
  Report Type: Report from Study
  Country: FR (occurrence: FR)
  Receive Date: 20220315
  Receipt Date: 20220502
  Transmission Date: 20220721
  Serious: Yes (Other)
  Sender: FDA-Public Use
  Company Number: FR-JNJFOC-20220323035

PATIENT
  Age: 76 Year
  Sex: Male
  Weight: 78 kg

DRUGS (12)
  1. SIMPONI [Suspect]
     Active Substance: GOLIMUMAB
     Indication: Colitis ulcerative
     Route: 058
     Dates: start: 20180209, end: 20180209
  2. SIMPONI [Suspect]
     Active Substance: GOLIMUMAB
     Route: 058
     Dates: start: 20180223, end: 20180223
  3. SIMPONI [Suspect]
     Active Substance: GOLIMUMAB
     Route: 058
     Dates: start: 20180323, end: 20180712
  4. MESALAMINE [Concomitant]
     Active Substance: MESALAMINE
     Dates: start: 20180612
  5. AZATHIOPRINE [Concomitant]
     Active Substance: AZATHIOPRINE
  6. ENTYVIO [Concomitant]
     Active Substance: VEDOLIZUMAB
     Dates: start: 20180612, end: 20190416
  7. INFLIXIMAB [Concomitant]
     Active Substance: INFLIXIMAB
  8. INFLECTRA [Concomitant]
     Active Substance: INFLIXIMAB-DYYB
     Dates: start: 20190506, end: 20191104
  9. STELARA [Concomitant]
     Active Substance: USTEKINUMAB
     Dates: start: 20200507, end: 20210613
  10. HYRIMOZ [Concomitant]
     Active Substance: ADALIMUMAB-ADAZ
     Dates: start: 20191112, end: 2020
  11. AZATHIOPRINE [Concomitant]
     Active Substance: AZATHIOPRINE
     Dates: start: 20200507
  12. TOFACITINIB [Concomitant]
     Active Substance: TOFACITINIB
     Dates: start: 20210614, end: 20211102

REACTIONS (1)
  - Intestinal adenocarcinoma [Recovering/Resolving]

NARRATIVE: CASE EVENT DATE: 20211021
